FAERS Safety Report 17453213 (Version 1)
Quarter: 2020Q1

REPORT INFORMATION
  Report Type: Spontaneous
  Country: RU (occurrence: RU)
  Receive Date: 20200224
  Receipt Date: 20200224
  Transmission Date: 20200409
  Serious: Yes (Hospitalization, Other)
  Sender: FDA-Public Use
  Company Number: RU-UCBSA-2020006825

PATIENT
  Age: 28 Year
  Sex: Female

DRUGS (1)
  1. VIMPAT [Suspect]
     Active Substance: LACOSAMIDE
     Indication: PARTIAL SEIZURES
     Dosage: 300MG DAILY

REACTIONS (4)
  - Seizure [Recovering/Resolving]
  - Maternal exposure during pregnancy [Unknown]
  - Premature delivery [Unknown]
  - Headache [Unknown]
